FAERS Safety Report 13642178 (Version 1)
Quarter: 2017Q2

REPORT INFORMATION
  Report Type: Spontaneous
  Country: US (occurrence: US)
  Receive Date: 20170610
  Receipt Date: 20170610
  Transmission Date: 20170830
  Serious: Yes (Hospitalization)
  Sender: FDA-Public Use
  Company Number: None

PATIENT
  Age: 79 Year
  Sex: Male
  Weight: 63.8 kg

DRUGS (19)
  1. JANUMET [Concomitant]
     Active Substance: METFORMIN HYDROCHLORIDE\SITAGLIPTIN PHOSPHATE
  2. AMIODARONE [Concomitant]
     Active Substance: AMIODARONE
  3. METOPROLOL. [Concomitant]
     Active Substance: METOPROLOL
  4. VELCADE [Suspect]
     Active Substance: BORTEZOMIB
     Dates: end: 20170526
  5. OMEPRAZOLE. [Concomitant]
     Active Substance: OMEPRAZOLE
  6. LINACLOTIDE [Concomitant]
     Active Substance: LINACLOTIDE
  7. ACYCLOVIR. [Concomitant]
     Active Substance: ACYCLOVIR
  8. PRAVASTATIN. [Concomitant]
     Active Substance: PRAVASTATIN
  9. SYMBICORT [Concomitant]
     Active Substance: BUDESONIDE\FORMOTEROL FUMARATE DIHYDRATE
  10. ALBUTEROL. [Concomitant]
     Active Substance: ALBUTEROL
  11. AMLODIPINE [Concomitant]
     Active Substance: AMLODIPINE BESYLATE
  12. FLEXERIL [Concomitant]
     Active Substance: CYCLOBENZAPRINE HYDROCHLORIDE
  13. OXYCONTIN [Concomitant]
     Active Substance: OXYCODONE HYDROCHLORIDE
  14. TAMSULOSIN [Concomitant]
     Active Substance: TAMSULOSIN
  15. ASPIRIN. [Concomitant]
     Active Substance: ASPIRIN
  16. OXYCODONE [Concomitant]
     Active Substance: OXYCODONE
  17. OLANZAPINE. [Concomitant]
     Active Substance: OLANZAPINE
  18. SENNA/DOCUSATE [Concomitant]
  19. VITAMIN D [Concomitant]
     Active Substance: CHOLECALCIFEROL

REACTIONS (3)
  - Pyrexia [None]
  - Asthenia [None]
  - Diarrhoea [None]

NARRATIVE: CASE EVENT DATE: 20170531
